FAERS Safety Report 8773996 (Version 2)
Quarter: 2012Q4

REPORT INFORMATION
  Report Type: 
  Country: US (occurrence: US)
  Receive Date: 20120907
  Receipt Date: 20120919
  Transmission Date: 20130627
  Serious: No
  Sender: FDA-Public Use
  Company Number: US-PFIZER INC-2012217511

PATIENT
  Sex: Female

DRUGS (11)
  1. LOPID [Suspect]
     Indication: BLOOD CHOLESTEROL INCREASED
     Dosage: 600 mg, daily
     Route: 048
     Dates: end: 20120915
  2. RAMIPRIL [Suspect]
     Dosage: UNK
  3. METFORMIN [Suspect]
     Indication: DIABETES MELLITUS
     Dosage: 1000 mg two times in a day
     Dates: end: 2012
  4. RANITIDINE [Interacting]
     Indication: GASTROOESOPHAGEAL REFLUX DISEASE
     Dosage: 300 mg two times in a day
  5. VITAMIN D [Suspect]
     Dosage: UNK
  6. BYETTA [Suspect]
     Indication: DIABETES MELLITUS
     Dosage: 5 mcg two times in a day
  7. BYETTA [Suspect]
     Dosage: 10 mcg two times in a day
  8. JANUMET [Interacting]
     Indication: DIABETES MELLITUS
     Dosage: 50/1000 mg two times in a day
     Dates: start: 2012, end: 2012
  9. LASIX [Concomitant]
     Indication: FLUID RETENTION
     Dosage: (from 20 to 40 mg), UNK
  10. LASIX [Concomitant]
     Indication: NEPHROLITHIASIS
  11. ALTACE [Concomitant]
     Indication: HYPERTENSION
     Dosage: 10 mg, daily

REACTIONS (7)
  - Drug interaction [Unknown]
  - Drug ineffective [Unknown]
  - Blood glucose decreased [Unknown]
  - Blood glucose increased [Unknown]
  - Feeling abnormal [Unknown]
  - Fatigue [Unknown]
  - Hyperhidrosis [Unknown]
